FAERS Safety Report 10050985 (Version 2)
Quarter: 2014Q2

REPORT INFORMATION
  Report Type: Spontaneous
  Country: JP (occurrence: JP)
  Receive Date: 20140401
  Receipt Date: 20140417
  Transmission Date: 20141212
  Serious: Yes (Death, Other)
  Sender: FDA-Public Use
  Company Number: JP-GLAXOSMITHKLINE-B0981570A

PATIENT
  Age: 67 Year
  Sex: Male

DRUGS (5)
  1. ALKERAN [Suspect]
     Indication: PRIMARY AMYLOIDOSIS
     Dosage: 2MG PER DAY
     Route: 065
  2. DECADRON [Concomitant]
  3. ONCOVIN [Concomitant]
  4. DOXORUBICIN [Concomitant]
  5. ETOPOSIDE [Concomitant]

REACTIONS (5)
  - Renal impairment [Unknown]
  - Myelodysplastic syndrome [Unknown]
  - Septic shock [Fatal]
  - Pneumonia [Fatal]
  - Sepsis [Fatal]
